FAERS Safety Report 7650090-8 (Version None)
Quarter: 2011Q3

REPORT INFORMATION
  Report Type: 
  Country: None (occurrence: None)
  Receive Date: 20110802
  Receipt Date: 20110720
  Transmission Date: 20111222
  Serious: Yes (Other)
  Sender: FDA-Public Use
  Company Number: US-ROCHE-628345

PATIENT
  Age: 34 Year
  Sex: Female

DRUGS (4)
  1. DACLIZUMAB [Suspect]
     Dosage: THERAPY STOPPED
     Route: 065
  2. DACLIZUMAB [Suspect]
     Indication: MULTIPLE SCLEROSIS RELAPSE
     Dosage: LOWERED DOSE
     Route: 065
  3. DACLIZUMAB [Suspect]
     Route: 065
  4. INTERFERON BETA-1A [Suspect]
     Indication: MULTIPLE SCLEROSIS RELAPSE
     Route: 065

REACTIONS (1)
  - GRANULOMA ANNULARE [None]
